FAERS Safety Report 15080423 (Version 1)
Quarter: 2018Q2

REPORT INFORMATION
  Report Type: Spontaneous
  Country: US (occurrence: US)
  Receive Date: 20180628
  Receipt Date: 20180628
  Transmission Date: 20180711
  Serious: No
  Sender: FDA-Public Use
  Company Number: US-ZYDUS-019434

PATIENT
  Age: 61 Year
  Sex: Male

DRUGS (6)
  1. MESALAZINE [Suspect]
     Active Substance: MESALAMINE
     Indication: PROCTITIS ULCERATIVE
     Route: 048
     Dates: start: 201710, end: 20180226
  2. AMITRIPTYLINE [Concomitant]
     Active Substance: AMITRIPTYLINE
     Indication: INSOMNIA
     Route: 065
  3. FLUTICASONE FUROATE/VILANTEROL [Concomitant]
     Indication: ASTHMA
     Route: 065
  4. LOSARTAN. [Concomitant]
     Active Substance: LOSARTAN
     Indication: HYPERTENSION
     Route: 065
  5. ATORVASTATIN [Concomitant]
     Active Substance: ATORVASTATIN
     Indication: BLOOD CHOLESTEROL INCREASED
     Route: 065
  6. AMITRIPTYLINE [Concomitant]
     Active Substance: AMITRIPTYLINE
     Indication: MUSCLE SPASMS
     Route: 065

REACTIONS (1)
  - Drug ineffective for unapproved indication [Unknown]
